FAERS Safety Report 7833506-3 (Version None)
Quarter: 2011Q4

REPORT INFORMATION
  Report Type: 
  Country: None (occurrence: None)
  Receive Date: 20111024
  Receipt Date: 20100207
  Transmission Date: 20120403
  Serious: No
  Sender: FDA-Public Use
  Company Number: US-BAYER-201013537NA

PATIENT
  Age: 47 Year
  Sex: Male

DRUGS (2)
  1. ORAL ANTIDIABETICS [Concomitant]
  2. LEVITRA [Suspect]
     Route: 048

REACTIONS (1)
  - DRUG INEFFECTIVE [None]
